FAERS Safety Report 6772202-0 (Version None)
Quarter: 2010Q2

REPORT INFORMATION
  Report Type: 
  Country: None (occurrence: None)
  Receive Date: 20100616
  Receipt Date: 20100609
  Transmission Date: 20101027
  Serious: Yes (Other)
  Sender: FDA-Public Use
  Company Number: US-CEPHALON-2010003213

PATIENT
  Sex: Female
  Weight: 95 kg

DRUGS (4)
  1. PROVIGIL [Suspect]
     Indication: NARCOLEPSY
     Route: 048
     Dates: start: 19990301
  2. PROVIGIL [Suspect]
     Indication: CATAPLEXY
  3. DEXEDRINE [Suspect]
     Indication: NARCOLEPSY
     Route: 048
     Dates: start: 19990401
  4. DESIPRAMINE HCL [Suspect]
     Indication: CATAPLEXY
     Route: 048
     Dates: start: 19930701

REACTIONS (2)
  - ABORTION SPONTANEOUS [None]
  - DRUG EXPOSURE DURING PREGNANCY [None]
